FAERS Safety Report 4310958-7 (Version None)
Quarter: 2004Q1

REPORT INFORMATION
  Report Type: 
  Country: None (occurrence: None)
  Receive Date: 20040302
  Receipt Date: 20040216
  Transmission Date: 20041129
  Serious: Yes (Death)
  Sender: FDA-Public Use
  Company Number: S04-IRL-00770-01

PATIENT
  Sex: Male

DRUGS (3)
  1. CIPRAMIL (CITALOPRAM HYDROBROMIDE) [Suspect]
     Dosage: 30 MG QD PO
     Route: 048
  2. MODECATE ^SANOFI WITHROP^ (FLUPHENAZINE DECANOATE) [Concomitant]
  3. PERIACTIN [Concomitant]

REACTIONS (1)
  - DEATH [None]
